FAERS Safety Report 6587289-8 (Version None)
Quarter: 2010Q1

REPORT INFORMATION
  Report Type: 
  Country: None (occurrence: None)
  Receive Date: 20100217
  Receipt Date: 20090720
  Transmission Date: 20100710
  Serious: No
  Sender: FDA-Public Use
  Company Number: US-ALLERGAN-0906566US

PATIENT
  Sex: Female
  Weight: 63.492 kg

DRUGS (2)
  1. BOTOX COSMETIC [Suspect]
     Indication: SKIN WRINKLING
     Dosage: 21 UNITS, SINGLE
     Route: 030
     Dates: start: 20090506, end: 20090506
  2. BOTOX COSMETIC [Suspect]

REACTIONS (4)
  - DIPLOPIA [None]
  - DRY EYE [None]
  - PHOTOPHOBIA [None]
  - VISION BLURRED [None]
